APPROVED DRUG PRODUCT: SELEGILINE HYDROCHLORIDE
Active Ingredient: SELEGILINE HYDROCHLORIDE
Strength: 5MG
Dosage Form/Route: TABLET;ORAL
Application: A074672 | Product #001 | TE Code: AB
Applicant: I3 PHARMACEUTICALS LLC
Approved: Apr 1, 1997 | RLD: No | RS: No | Type: RX